FAERS Safety Report 24581307 (Version 1)
Quarter: 2024Q4

REPORT INFORMATION
  Report Type: Spontaneous
  Country: US (occurrence: US)
  Receive Date: 20241105
  Receipt Date: 20241105
  Transmission Date: 20250114
  Serious: Yes (Death, Other)
  Sender: BRISTOL-MYERS SQUIBB COMPANY
  Company Number: US-BRISTOL-MYERS SQUIBB COMPANY-2024-172611

PATIENT
  Age: 74 Year
  Sex: Male

DRUGS (1)
  1. KRAZATI [Suspect]
     Active Substance: ADAGRASIB
     Indication: Product used for unknown indication
     Dosage: FREQUENCY: TAKE 3 TABLETS BY MOUTH TWICE A DAY, WITH OR WITHOUT FOOD
     Route: 048

REACTIONS (1)
  - Death [Fatal]
